FAERS Safety Report 5259347-1 (Version None)
Quarter: 2007Q1

REPORT INFORMATION
  Report Type: 
  Country: None (occurrence: None)
  Receive Date: 20070302
  Receipt Date: 20070219
  Transmission Date: 20070707
  Serious: Yes (Hospitalization)
  Sender: FDA-Public Use
  Company Number: 2007SP003144

PATIENT
  Age: 59 Year
  Sex: Female
  Weight: 60 kg

DRUGS (13)
  1. NOXAFIL [Suspect]
     Indication: ASPERGILLOMA
     Dosage: 1 DF; BID;PO
     Route: 048
  2. NOXAFIL [Suspect]
     Indication: ASPERGILLOSIS
     Dosage: 1 DF; BID;PO
     Route: 048
  3. PREDNISONE [Suspect]
     Dosage: 10 MG; QD; PO
     Route: 048
     Dates: start: 20061005
  4. FUNGIZONE [Suspect]
     Dosage: 1 DF; TID;PO
     Route: 048
  5. LEXOMIL (BROMAZEPAM) [Suspect]
     Dosage: 1 DF;QD;PO
     Route: 048
  6. ZELITREX (NO PREF. NAME) [Suspect]
     Dosage: 500 MG;QD;PO
     Route: 048
  7. NEORAL [Suspect]
     Dosage: 50 MG;BID'PO
     Route: 048
     Dates: start: 20061005
  8. PHENOXYMETHYLPENICILLIN [Suspect]
     Dosage: 2 DF; QD
  9. BACTRIM DS [Suspect]
     Dosage: 1 DF;TIW
  10. OMEPRAZOLE [Suspect]
     Dosage: 20 MG; QD
  11. LEDERFOLINE (NO PREF. NAME) [Suspect]
     Dosage: 25 MG;QW
  12. DIANTALVIC (DI-GESIC) [Suspect]
  13. MORPHINE [Suspect]
     Dates: start: 20061218, end: 20061225

REACTIONS (4)
  - CONFUSIONAL STATE [None]
  - DEPRESSION [None]
  - DISORIENTATION [None]
  - MEMORY IMPAIRMENT [None]
